FAERS Safety Report 9355089 (Version 1)
Quarter: 2013Q2

REPORT INFORMATION
  Report Type: Report from Study
  Country: TN (occurrence: TN)
  Receive Date: 20130619
  Receipt Date: 20130619
  Transmission Date: 20140414
  Serious: Yes (Death)
  Sender: FDA-Public Use
  Company Number: TN-SANOFI-AVENTIS-2013SA060518

PATIENT
  Age: 75 Year
  Sex: Male

DRUGS (6)
  1. CLOPIDOGREL BISULFATE [Suspect]
     Indication: CORONARY ARTERY INSUFFICIENCY
     Route: 048
     Dates: start: 20091101, end: 20130528
  2. ASPEGIC [Concomitant]
     Route: 048
     Dates: end: 20130528
  3. ALDACTONE [Concomitant]
     Route: 048
     Dates: end: 20130528
  4. CORDARONE [Concomitant]
     Route: 048
     Dates: end: 20130528
  5. ZOCOR [Concomitant]
     Route: 048
     Dates: end: 20130528
  6. LASILIX [Concomitant]
     Route: 048
     Dates: end: 20130528

REACTIONS (2)
  - Atrial fibrillation [Fatal]
  - Off label use [Unknown]
